FAERS Safety Report 21388562 (Version 1)
Quarter: 2022Q3

REPORT INFORMATION
  Report Type: Spontaneous
  Country: US (occurrence: US)
  Receive Date: 20220928
  Receipt Date: 20220928
  Transmission Date: 20221027
  Serious: No
  Sender: FDA-Public Use
  Company Number: US-Blueprint Medicines Corporation-458

PATIENT
  Sex: Female

DRUGS (2)
  1. AYVAKIT [Suspect]
     Active Substance: AVAPRITINIB
     Indication: Systemic mastocytosis
     Dosage: 50 MG EVERY MONDAY, WEDNESDAY, AND FRIDAY ONLY
     Route: 065
  2. SPIRONOLACTONE [Suspect]
     Active Substance: SPIRONOLACTONE
     Indication: Product used for unknown indication
     Route: 065

REACTIONS (8)
  - Blood potassium abnormal [Unknown]
  - Fluid retention [Unknown]
  - Drug hypersensitivity [Unknown]
  - Gallbladder disorder [Unknown]
  - Off label use [Unknown]
  - Illness [Unknown]
  - Asthenia [Unknown]
  - Vomiting [Unknown]
